FAERS Safety Report 10176498 (Version 7)
Quarter: 2016Q3

REPORT INFORMATION
  Report Type: Report from Study
  Country: US (occurrence: US)
  Receive Date: 20140516
  Receipt Date: 20160818
  Transmission Date: 20161108
  Serious: Yes (Hospitalization)
  Sender: FDA-Public Use
  Company Number: US-PFIZER INC-2014125475

PATIENT
  Age: 16 Year
  Sex: Female
  Weight: 72.3 kg

DRUGS (15)
  1. BACTRIM [Concomitant]
     Active Substance: SULFAMETHOXAZOLE\TRIMETHOPRIM
     Dosage: UNK
     Dates: start: 20140111
  2. CRIZOTINIB [Suspect]
     Active Substance: CRIZOTINIB
     Indication: ANAPLASTIC LARGE CELL LYMPHOMA T- AND NULL-CELL TYPES
     Dosage: COURSE A: 165 MG/M2, (250MG) 2X/DAY ON DAYS 1-21
     Route: 048
     Dates: start: 20140111, end: 20140111
  3. CRIZOTINIB [Suspect]
     Active Substance: CRIZOTINIB
     Dosage: LOWER DOSE PER PROTOCOL (DOSE GROUP C)
     Route: 048
     Dates: start: 20140122, end: 20140124
  4. METHOTREXATE SODIUM. [Suspect]
     Active Substance: METHOTREXATE SODIUM
     Indication: ANAPLASTIC LARGE CELL LYMPHOMA T- AND NULL-CELL TYPES
     Dosage: PROPHASE (CYCLE= 5 DAYS): 7.5-12 MG ON DAY 1 (AGE BASED DOSING)
     Route: 037
     Dates: start: 20140106, end: 20140106
  5. CYTARABINE. [Suspect]
     Active Substance: CYTARABINE
     Dosage: COURSE A: 150MG/M2 IV OVER 1-30 MINUTES Q12 HOURS ON DAYS 4 AND 5
     Route: 042
     Dates: start: 20140114
  6. CYCLOPHOSPHAMIDE. [Concomitant]
     Active Substance: CYCLOPHOSPHAMIDE
     Indication: ANAPLASTIC LARGE CELL LYMPHOMA T- AND NULL-CELL TYPES
     Dosage: PROPHASE (CYCLE= 5 DAYS): 200 MG/M2, IV OVER 30-60 MIN ON DAYS 1 AND 2
     Route: 042
     Dates: start: 20140106, end: 20140107
  7. CRIZOTINIB [Suspect]
     Active Substance: CRIZOTINIB
     Dosage: UNK
     Route: 048
     Dates: start: 20140112, end: 201401
  8. CYTARABINE. [Suspect]
     Active Substance: CYTARABINE
     Indication: ANAPLASTIC LARGE CELL LYMPHOMA T- AND NULL-CELL TYPES
     Dosage: PROPHASE (CYCLE= 5 DAYS): 15-24 MG ON DAY 1 (AGE BASED DOSING), (24 MG)
     Route: 037
     Dates: start: 20140106, end: 20140106
  9. METHOTREXATE SODIUM. [Suspect]
     Active Substance: METHOTREXATE SODIUM
     Dosage: COURSE A: 3000 MG/M2, IV OVER 3 HOURS ON DAY 1
     Route: 042
     Dates: start: 20140111
  10. ETOPOSIDE. [Suspect]
     Active Substance: ETOPOSIDE
     Indication: ANAPLASTIC LARGE CELL LYMPHOMA T- AND NULL-CELL TYPES
     Dosage: COURSE A: 100 MG/M2, OVER 2 HOURS ON DAYS 4 AND 5
     Route: 042
     Dates: start: 20140114
  11. ZOFRAN [Concomitant]
     Active Substance: ONDANSETRON HYDROCHLORIDE
     Indication: NAUSEA
     Dosage: UNK
  12. HYDROCORTISONE ACETATE. [Suspect]
     Active Substance: HYDROCORTISONE ACETATE
     Indication: ANAPLASTIC LARGE CELL LYMPHOMA T- AND NULL-CELL TYPES
     Dosage: PROPHASE (CYCLE= 5 DAYS): 7.5-12 MG ON DAY 1 (AGE BASED DOSING)
     Route: 037
     Dates: start: 20140106, end: 20140106
  13. DEXAMETHASONE. [Suspect]
     Active Substance: DEXAMETHASONE
     Indication: ANAPLASTIC LARGE CELL LYMPHOMA T- AND NULL-CELL TYPES
     Dosage: PROPHASE (CYCLE= 5 DAYS): 5MG/M2 1X/DAY ON DAYS 1-2 AND 5MG/M2 PO BID ON DAYS 3-5, (72 MG)
     Route: 048
     Dates: start: 20140106, end: 20140110
  14. DEXAMETHASONE. [Suspect]
     Active Substance: DEXAMETHASONE
     Dosage: COURSE A: 5 MG/M2, 2X/DAY ON DAYS 1-5
     Route: 048
     Dates: start: 20140111
  15. IFOSFAMIDE. [Suspect]
     Active Substance: IFOSFAMIDE
     Indication: ANAPLASTIC LARGE CELL LYMPHOMA T- AND NULL-CELL TYPES
     Dosage: COURSE A: 800 MG/M2, IV OVER 60 MINUTES ON DAYS 1-5
     Route: 042
     Dates: start: 20140111

REACTIONS (5)
  - Posterior reversible encephalopathy syndrome [Recovered/Resolved]
  - Seizure [Recovered/Resolved]
  - Colitis [Recovered/Resolved]
  - Ileus [Recovered/Resolved]
  - Vomiting [Recovered/Resolved]

NARRATIVE: CASE EVENT DATE: 20140111
